FAERS Safety Report 5458675-4 (Version None)
Quarter: 2007Q3

REPORT INFORMATION
  Report Type: 
  Country: None (occurrence: None)
  Receive Date: 20070919
  Receipt Date: 20070416
  Transmission Date: 20080115
  Serious: No
  Sender: FDA-Public Use
  Company Number: US-ASTRAZENECA-2007UW07490

PATIENT
  Sex: Male

DRUGS (2)
  1. SEROQUEL [Suspect]
     Indication: BIPOLAR DISORDER
     Route: 048
  2. LITHIUM [Interacting]
     Indication: BIPOLAR DISORDER

REACTIONS (2)
  - DRUG INTERACTION [None]
  - RESTLESS LEGS SYNDROME [None]
